FAERS Safety Report 14927219 (Version 2)
Quarter: 2021Q1

REPORT INFORMATION
  Report Type: Spontaneous
  Country: US (occurrence: US)
  Receive Date: 20180523
  Receipt Date: 20210205
  Transmission Date: 20210419
  Serious: Yes (Other)
  Sender: FDA-Public Use
  Company Number: US-PFIZER INC-2018205804

PATIENT
  Age: 38 Year
  Sex: Male

DRUGS (1)
  1. GENOTROPIN MQ [Suspect]
     Active Substance: SOMATROPIN
     Dosage: 0.4 MG, DAILY
     Dates: start: 2015

REACTIONS (4)
  - Blood growth hormone increased [Unknown]
  - Craniocerebral injury [Unknown]
  - Infertility [Unknown]
  - Polyuria [Unknown]

NARRATIVE: CASE EVENT DATE: 20191022
